FAERS Safety Report 25634650 (Version 1)
Quarter: 2025Q3

REPORT INFORMATION
  Report Type: Report from Study
  Country: JP (occurrence: JP)
  Receive Date: 20250801
  Receipt Date: 20250801
  Transmission Date: 20251021
  Serious: Yes (Death)
  Sender: MALLINCKRODT
  Company Number: JP-MALLINCKRODT-MNK202504604

PATIENT
  Age: 73 Year
  Sex: Female

DRUGS (1)
  1. NITRIC OXIDE [Suspect]
     Active Substance: NITRIC OXIDE
     Indication: Acute myocardial infarction
     Route: 055

REACTIONS (4)
  - Multiple organ dysfunction syndrome [Fatal]
  - Haemorrhage [Fatal]
  - Intestinal ischaemia [Fatal]
  - Disease complication [Fatal]
